FAERS Safety Report 9309283 (Version 1)
Quarter: 2013Q2

REPORT INFORMATION
  Report Type: Spontaneous
  Country: US (occurrence: US)
  Receive Date: 20130525
  Receipt Date: 20130525
  Transmission Date: 20140414
  Serious: No
  Sender: FDA-Public Use
  Company Number: US-BRISTOL-MYERS SQUIBB COMPANY-18579102

PATIENT
  Age: 54 Year
  Sex: Female

DRUGS (4)
  1. BYETTA PEN DISPOSABLE [Suspect]
     Indication: TYPE 2 DIABETES MELLITUS
     Route: 058
     Dates: start: 2010, end: 2010
  2. BYETTA PEN DISPOSABLE [Suspect]
     Indication: TYPE 2 DIABETES MELLITUS
     Route: 058
     Dates: start: 2010, end: 2011
  3. GLUCOPHAGE [Concomitant]
  4. METFORMIN [Concomitant]

REACTIONS (1)
  - Nausea [Recovered/Resolved]
